FAERS Safety Report 10587809 (Version 5)
Quarter: 2014Q4

REPORT INFORMATION
  Report Type: Spontaneous
  Country: JP (occurrence: JP)
  Receive Date: 20141117
  Receipt Date: 20141215
  Transmission Date: 20150529
  Serious: Yes (Hospitalization, Other)
  Sender: FDA-Public Use
  Company Number: JP-PFIZER INC-2014313025

PATIENT
  Age: 75 Year
  Sex: Male
  Weight: 58.6 kg

DRUGS (19)
  1. TRAMAL [Concomitant]
     Active Substance: TRAMADOL
     Dosage: 25 MG, 4X/DAY (SHORTLY AFTER EVERY MEAL AND BEFORE BEDTIME)
     Route: 048
     Dates: end: 20141112
  2. AMLODIN OD [Concomitant]
     Active Substance: AMLODIPINE BESYLATE
     Dosage: 5 MG, 1X/DAY (AFTER BREAKFAST)
     Route: 048
     Dates: end: 20141112
  3. LYRICA [Suspect]
     Active Substance: PREGABALIN
     Indication: PROCEDURAL PAIN
     Dosage: 300 MG, 2X/DAY
     Route: 048
     Dates: start: 20140811, end: 20141112
  4. DEPAS [Concomitant]
     Active Substance: ETIZOLAM
     Dosage: 0.5 MG, 1X/DAY (BEFORE BEDTIME)
     Route: 048
     Dates: end: 20141112
  5. REGNITE [Concomitant]
     Active Substance: GABAPENTIN ENACARBIL
     Dosage: 600 MG, 1X/DAY (AFTER DINNER)
     Route: 048
     Dates: end: 20141112
  6. SHAKUYAKUKANZOTO [Concomitant]
     Active Substance: HERBALS
     Dosage: 2.5 G (1 SACHET), 3X/DAY (AFTER EVERY MEAL)
     Route: 048
     Dates: end: 20141112
  7. LYRICA [Suspect]
     Active Substance: PREGABALIN
     Indication: NEURALGIA
     Dosage: 150 MG, 2X/DAY
     Route: 048
     Dates: end: 20140810
  8. ONON [Concomitant]
     Active Substance: PRANLUKAST
     Dosage: 25 MG, 2X/DAY (AFTER BREAKFAST AND DINNER)
     Route: 048
     Dates: end: 20141112
  9. HARNAL [Concomitant]
     Active Substance: TAMSULOSIN HYDROCHLORIDE
     Dosage: 0.2 MG, 1X/DAY (AFTER BREAKFAST)
     Route: 048
     Dates: end: 20141112
  10. AMINOLEBAN [Concomitant]
     Active Substance: AMINO ACIDS
     Dosage: 50 G (1 SACHET), 3X/DAY (AFTER EVERY MEAL)
     Route: 048
     Dates: end: 20141112
  11. URSO [Concomitant]
     Active Substance: URSODIOL
     Dosage: 200 MG, 3X/DAY (AFTER EVER MEAL)
     Route: 048
     Dates: end: 20141112
  12. LENDORMIN D [Concomitant]
     Active Substance: BROTIZOLAM
     Dosage: 0.25 MG, 1X/DAY (BEFORE BEDTIME)
     Route: 048
     Dates: end: 20141112
  13. ALLELOCK [Concomitant]
     Active Substance: OLOPATADINE HYDROCHLORIDE
     Dosage: 5 MG, 1X/DAY (AFTER DINNER)
     Route: 048
     Dates: end: 20141112
  14. CELECOX [Concomitant]
     Active Substance: CELECOXIB
     Dosage: 100 MG, 2X/DAY (AFTER BREAKFAST AND DINNER)
     Route: 048
     Dates: end: 20141112
  15. PARIET [Concomitant]
     Active Substance: RABEPRAZOLE SODIUM
     Dosage: 10 MG, 1X/DAY (AFTER DINNER)
     Route: 048
     Dates: end: 20141112
  16. PAXIL CR [Concomitant]
     Active Substance: PAROXETINE HYDROCHLORIDE
     Dosage: 12.5 MG, 1X/DAY (AFTER BREAKFAST)
     Route: 048
     Dates: end: 20141112
  17. OPALMON [Concomitant]
     Active Substance: LIMAPROST
     Dosage: 5 ?G, 3X/DAY (AFTER EVERY MEAL)
     Route: 048
     Dates: end: 20141112
  18. LASIX [Concomitant]
     Active Substance: FUROSEMIDE
     Dosage: 20 MG, 2X/DAY (AFTER BREAKFAST AND DINNER)
     Route: 048
     Dates: end: 20141112
  19. LIVACT [Concomitant]
     Active Substance: AMINO ACIDS
     Dosage: 4.15 G (1 SACHET), 3X/DAY (AFTER EVERY MEAL)
     Route: 048
     Dates: end: 20141112

REACTIONS (14)
  - Fall [Unknown]
  - Wound [Unknown]
  - Blood lactate dehydrogenase increased [Recovering/Resolving]
  - Aspartate aminotransferase increased [Recovered/Resolved]
  - Gait disturbance [Recovering/Resolving]
  - Pain in extremity [Recovering/Resolving]
  - Contusion [Unknown]
  - Rhabdomyolysis [Recovering/Resolving]
  - Blood urea increased [Recovered/Resolved]
  - Drug ineffective for unapproved indication [Unknown]
  - Abasia [Recovering/Resolving]
  - C-reactive protein increased [Recovering/Resolving]
  - Blood sodium increased [Recovered/Resolved]
  - Blood creatine phosphokinase increased [Recovering/Resolving]

NARRATIVE: CASE EVENT DATE: 20140704
